FAERS Safety Report 6851556-0 (Version None)
Quarter: 2010Q3

REPORT INFORMATION
  Report Type: 
  Country: None (occurrence: None)
  Receive Date: 20100717
  Receipt Date: 20080118
  Transmission Date: 20110219
  Serious: No
  Sender: FDA-Public Use
  Company Number: US-PFIZER INC-2008006963

PATIENT
  Sex: Female
  Weight: 100 kg

DRUGS (13)
  1. CHANTIX [Suspect]
     Indication: SMOKING CESSATION THERAPY
     Dates: start: 20080101
  2. BENZTROPINE MESYLATE [Concomitant]
  3. CELEXA [Concomitant]
  4. CLONAZEPAM [Concomitant]
  5. DEPAKOTE [Concomitant]
  6. NEXIUM [Concomitant]
  7. IBUPROFEN [Concomitant]
  8. MECLIZINE [Concomitant]
  9. METFORMIN HCL [Concomitant]
  10. PRILOSEC [Concomitant]
  11. MIRAPEX [Concomitant]
  12. SEROQUEL [Concomitant]
  13. RISPERDAL [Concomitant]

REACTIONS (3)
  - DIARRHOEA [None]
  - NAUSEA [None]
  - VOMITING [None]
